FAERS Safety Report 4974436-4 (Version None)
Quarter: 2006Q2

REPORT INFORMATION
  Report Type: 
  Country: None (occurrence: None)
  Receive Date: 20060410
  Receipt Date: 20060330
  Transmission Date: 20061013
  Serious: Yes (Other)
  Sender: FDA-Public Use
  Company Number: TCI2006A01478

PATIENT
  Age: 70 Year
  Sex: Male

DRUGS (8)
  1. ACTOS [Suspect]
     Dosage: 30 MG (30 MG, 1 IN 1 D)
     Route: 048
     Dates: start: 20060228, end: 20060317
  2. AMARYL [Concomitant]
  3. ATELEC (CILNIDIPINE) [Concomitant]
  4. KINEDAK (EPALRESTAT) [Concomitant]
  5. OPALMON (LIMAPROST) [Concomitant]
  6. PROCLYN (BERAPROST SODIUM) [Concomitant]
  7. ALLOPURINOL [Concomitant]
  8. LOSARTAN POTASSIUM [Concomitant]

REACTIONS (3)
  - DIZZINESS [None]
  - NAUSEA [None]
  - OEDEMA PERIPHERAL [None]
